FAERS Safety Report 15888211 (Version 1)
Quarter: 2019Q1

REPORT INFORMATION
  Report Type: Report from Study
  Country: CN (occurrence: CN)
  Receive Date: 20190130
  Receipt Date: 20190130
  Transmission Date: 20190417
  Serious: Yes (Death)
  Sender: FDA-Public Use
  Company Number: CN-ROCHE-2255812

PATIENT
  Age: 6 Year
  Sex: Male

DRUGS (2)
  1. CETIRIZINE [Concomitant]
     Active Substance: CETIRIZINE HYDROCHLORIDE
     Route: 048
  2. RITUXIMAB. [Suspect]
     Active Substance: RITUXIMAB
     Indication: REFRACTORINESS TO PLATELET TRANSFUSION
     Route: 042

REACTIONS (2)
  - Platelet count decreased [Fatal]
  - Haemorrhage intracranial [Fatal]
